FAERS Safety Report 5213131-3 (Version None)
Quarter: 2007Q1

REPORT INFORMATION
  Report Type: 
  Country: None (occurrence: None)
  Receive Date: 20070118
  Receipt Date: 20070118
  Transmission Date: 20070707
  Serious: Yes (Other)
  Sender: FDA-Public Use
  Company Number: None

PATIENT
  Age: 58 Year
  Sex: Female
  Weight: 74 kg

DRUGS (8)
  1. BEVACIZUMAB [Suspect]
     Indication: RENAL CANCER METASTATIC
     Dosage: 740 MG IV X 1
     Route: 042
     Dates: start: 20070108
  2. PROLEUKIN [Suspect]
     Indication: METASTASES TO LUNG
  3. ZETIA [Concomitant]
  4. PROTONIX [Concomitant]
  5. SYNTHROID [Concomitant]
  6. IBUPROFEN [Concomitant]
  7. NORVASC [Concomitant]
  8. BACOLFEN [Concomitant]

REACTIONS (3)
  - FALL [None]
  - RADIUS FRACTURE [None]
  - ULNA FRACTURE [None]
